FAERS Safety Report 8620221-1 (Version None)
Quarter: 2012Q3

REPORT INFORMATION
  Report Type: 
  Country: None (occurrence: None)
  Receive Date: 20120824
  Receipt Date: 20120814
  Transmission Date: 20120928
  Serious: Yes (Hospitalization)
  Sender: FDA-Public Use
  Company Number: PHHY2012BR071588

PATIENT
  Age: 58 Year
  Sex: Male

DRUGS (10)
  1. BUDESONIDE [Concomitant]
     Dosage: 400 UG, QD
  2. FORMOTEROL FUMARATE [Suspect]
     Dosage: 1 DF, Q12H
  3. ONBREZ [Suspect]
     Dosage: 150 UG, QD
  4. BUPROPION HCL [Concomitant]
     Indication: SMOKING CESSATION THERAPY
  5. PNEUMOCOCCAL VACCINE [Concomitant]
     Dosage: UNK UKN, UNK
     Dates: start: 20100101
  6. OXYGEN THERAPY [Concomitant]
     Dosage: UNK UKN, UNK
  7. ANTI-FLU [Concomitant]
     Dosage: UNK UKN, UNK
  8. BAMIFIX [Concomitant]
     Dosage: 600 MG, Q12H
  9. XANTHINES [Concomitant]
     Dosage: UNK UKN, UNK
  10. SPIRIVA [Concomitant]
     Dosage: 2.5 UG, QD

REACTIONS (2)
  - CHRONIC OBSTRUCTIVE PULMONARY DISEASE [None]
  - PRODUCTIVE COUGH [None]
